FAERS Safety Report 16890731 (Version 1)
Quarter: 2019Q4

REPORT INFORMATION
  Report Type: Spontaneous
  Country: US (occurrence: US)
  Receive Date: 20191005
  Receipt Date: 20191005
  Transmission Date: 20200122
  Serious: No
  Sender: FDA-Public Use
  Company Number: None

PATIENT
  Age: 39 Year
  Sex: Female
  Weight: 90 kg

DRUGS (1)
  1. VERAPAMIL [Suspect]
     Active Substance: VERAPAMIL HYDROCHLORIDE
     Indication: MIGRAINE PROPHYLAXIS
     Dates: start: 20130524, end: 20130524

REACTIONS (2)
  - Rash [None]
  - Blood pressure increased [None]

NARRATIVE: CASE EVENT DATE: 20130525
